FAERS Safety Report 9414838 (Version 1)
Quarter: 2013Q3

REPORT INFORMATION
  Report Type: Spontaneous
  Country: US (occurrence: None)
  Receive Date: 20130718
  Receipt Date: 20130718
  Transmission Date: 20140515
  Serious: Yes (Other)
  Sender: FDA-Public Use
  Company Number: PRED20130044

PATIENT
  Age: 5 Year
  Sex: Female

DRUGS (1)
  1. PREDNISONE [Suspect]
     Indication: ACUTE LYMPHOCYTIC LEUKAEMIA
     Route: 048

REACTIONS (6)
  - Superior sagittal sinus thrombosis [None]
  - Anxiety [None]
  - Emotional disorder [None]
  - Disturbance in attention [None]
  - Motor dysfunction [None]
  - Memory impairment [None]
